FAERS Safety Report 7957156-3 (Version None)
Quarter: 2011Q4

REPORT INFORMATION
  Report Type: 
  Country: None (occurrence: None)
  Receive Date: 20111205
  Receipt Date: 20111125
  Transmission Date: 20120403
  Serious: Yes (Other)
  Sender: FDA-Public Use
  Company Number: US-BAYER-201033120NA

PATIENT
  Age: 27 Year
  Sex: Female
  Weight: 57.143 kg

DRUGS (4)
  1. DROSPIRENONE AND ETHINYL ESTRADIOL [Suspect]
     Dosage: UNK
     Dates: start: 20080801, end: 20090201
  2. YASMIN [Suspect]
     Dosage: UNK UNK, QD
     Route: 048
     Dates: start: 20090201, end: 20090801
  3. YAZ [Suspect]
  4. NEXIUM [Concomitant]
     Indication: GASTROOESOPHAGEAL REFLUX DISEASE
     Dosage: 40 MG, UNK
     Dates: start: 20090623, end: 20090723

REACTIONS (12)
  - BILE DUCT STONE [None]
  - FLATULENCE [None]
  - CONSTIPATION [None]
  - CHOLECYSTITIS CHRONIC [None]
  - CHOLEDOCHAL CYST [None]
  - SCAR [None]
  - DIARRHOEA [None]
  - CHOLECYSTECTOMY [None]
  - ANXIETY [None]
  - ABDOMINAL DISTENSION [None]
  - DYSPEPSIA [None]
  - DEPRESSION [None]
